FAERS Safety Report 19181798 (Version 1)
Quarter: 2021Q2

REPORT INFORMATION
  Report Type: Report from Study
  Country: US (occurrence: US)
  Receive Date: 20210426
  Receipt Date: 20210426
  Transmission Date: 20210717
  Serious: Yes (Other)
  Sender: FDA-Public Use
  Company Number: US-TAKEDA-2018TUS018856

PATIENT
  Sex: Male

DRUGS (4)
  1. PONATINIB [Suspect]
     Active Substance: PONATINIB
     Indication: CHRONIC MYELOID LEUKAEMIA
     Dosage: 15 MILLIGRAM
     Route: 065
     Dates: start: 20180606
  2. PONATINIB [Suspect]
     Active Substance: PONATINIB
     Dosage: 30 MILLIGRAM, QD
     Route: 048
  3. PONATINIB [Suspect]
     Active Substance: PONATINIB
     Dosage: 30 MILLIGRAM, QD
     Route: 048
  4. PONATINIB [Suspect]
     Active Substance: PONATINIB
     Dosage: 15 MILLIGRAM, BID
     Route: 048

REACTIONS (10)
  - Hypothyroidism [Unknown]
  - Movement disorder [Unknown]
  - Prostatic disorder [Unknown]
  - COVID-19 [Recovered/Resolved]
  - Decreased appetite [Unknown]
  - Neuropathy peripheral [Unknown]
  - Incorrect dose administered [Unknown]
  - Fatigue [Unknown]
  - Asthenia [Unknown]
  - Hypertension [Unknown]
